FAERS Safety Report 7677180-8 (Version None)
Quarter: 2011Q3

REPORT INFORMATION
  Report Type: 
  Country: None (occurrence: None)
  Receive Date: 20110808
  Receipt Date: 20110725
  Transmission Date: 20111222
  Serious: Yes (Disabling)
  Sender: FDA-Public Use
  Company Number: 2011-0915

PATIENT
  Age: 20 Year
  Sex: Male
  Weight: 29.4838 kg

DRUGS (2)
  1. DYSPORT [Suspect]
     Indication: OFF LABEL USE
     Dosage: 750 UNITS (750 UNITS, SINGLE CYCLE, INTRAVESICAL
     Route: 043
     Dates: start: 20110218, end: 20110218
  2. DYSPORT [Suspect]
     Indication: NEUROGENIC BLADDER
     Dosage: 750 UNITS (750 UNITS, SINGLE CYCLE, INTRAVESICAL
     Route: 043
     Dates: start: 20110218, end: 20110218

REACTIONS (2)
  - TOXICITY TO VARIOUS AGENTS [None]
  - MUSCULAR WEAKNESS [None]
